FAERS Safety Report 9372107 (Version 1)
Quarter: 2013Q2

REPORT INFORMATION
  Report Type: Report from Study
  Country: US (occurrence: US)
  Receive Date: 20130627
  Receipt Date: 20130627
  Transmission Date: 20140414
  Serious: Yes (Other)
  Sender: FDA-Public Use
  Company Number: US-MYLANLABS-2012S1015080

PATIENT
  Age: 31 Year
  Sex: Male
  Weight: 111.59 kg

DRUGS (20)
  1. CLOZAPINE TABLETS [Suspect]
     Indication: SCHIZOPHRENIA
     Route: 048
     Dates: start: 201207, end: 20120718
  2. CLOZAPINE TABLETS [Suspect]
     Indication: PSYCHOTIC DISORDER
     Route: 048
     Dates: start: 201207, end: 20120718
  3. CLOZAPINE TABLETS [Suspect]
     Indication: SCHIZOPHRENIA
     Route: 048
     Dates: start: 20120714, end: 201207
  4. CLOZAPINE TABLETS [Suspect]
     Indication: PSYCHOTIC DISORDER
     Route: 048
     Dates: start: 20120714, end: 201207
  5. PALIPERIDONE [Concomitant]
  6. RISPERDAL [Concomitant]
  7. DIVALPROEX [Concomitant]
  8. OXCARBAZEPINE [Concomitant]
  9. CHLORPROMAZINE [Concomitant]
     Route: 048
  10. PERPHENAZINE [Concomitant]
  11. ATENOLOL [Concomitant]
  12. FAMOTIDINE [Concomitant]
  13. DIPHENHYDRAMINE [Concomitant]
     Route: 048
  14. HALOPERIDOL [Concomitant]
     Route: 048
  15. ALBUTEROL INHALER [Concomitant]
     Dosage: 2 PUFFS
  16. MYLANTA [Concomitant]
     Route: 048
  17. LORAZEPAM [Concomitant]
     Route: 048
  18. ACETAMINOPHEN [Concomitant]
     Route: 048
  19. IBUPROFEN [Concomitant]
     Route: 048
  20. CLONAZEPAM [Concomitant]
     Route: 048

REACTIONS (1)
  - Granulocytopenia [Recovered/Resolved]
